FAERS Safety Report 9802897 (Version 1)
Quarter: 2014Q1

REPORT INFORMATION
  Report Type: Spontaneous
  Country: US (occurrence: US)
  Receive Date: 20140108
  Receipt Date: 20140108
  Transmission Date: 20141002
  Serious: No
  Sender: FDA-Public Use
  Company Number: US-GLAXOSMITHKLINE-A1044746A

PATIENT
  Age: 38 Year
  Sex: Male
  Weight: 102.3 kg

DRUGS (3)
  1. POTIGA [Suspect]
     Indication: EPILEPSY
     Dosage: 400MG THREE TIMES PER DAY
     Route: 048
  2. BANZEL [Concomitant]
  3. LAMOTRIGINE [Concomitant]

REACTIONS (1)
  - Chromaturia [Recovered/Resolved]
